FAERS Safety Report 11605197 (Version 1)
Quarter: 2015Q4

REPORT INFORMATION
  Report Type: Spontaneous
  Country: US (occurrence: None)
  Receive Date: 20151006
  Receipt Date: 20151006
  Transmission Date: 20160304
  Serious: Yes (Other)
  Sender: FDA-Public Use
  Company Number: None

PATIENT
  Age: 74 Year
  Sex: Male
  Weight: 86.18 kg

DRUGS (3)
  1. PRAMIPEXOLE 0.5MG [Suspect]
     Active Substance: PRAMIPEXOLE
     Indication: RESTLESS LEGS SYNDROME
     Route: 048
     Dates: start: 20150916, end: 20151004
  2. PRAMIPEXOLE 0.5MG [Suspect]
     Active Substance: PRAMIPEXOLE
     Indication: SLEEP DISORDER
     Route: 048
     Dates: start: 20150916, end: 20151004
  3. PACEMAKER [Concomitant]

REACTIONS (4)
  - Confusional state [None]
  - Somnolence [None]
  - Abnormal behaviour [None]
  - Hallucination [None]
